FAERS Safety Report 4337143-7 (Version None)
Quarter: 2004Q2

REPORT INFORMATION
  Report Type: 
  Country: None (occurrence: None)
  Receive Date: 20040408
  Receipt Date: 20040324
  Transmission Date: 20050107
  Serious: Yes (Hospitalization)
  Sender: FDA-Public Use
  Company Number: 2004-BP-0206NB

PATIENT
  Age: 66 Year
  Sex: Male

DRUGS (2)
  1. MICARDIS [Suspect]
     Dosage: PO
     Route: 048
     Dates: start: 20040312
  2. COMELIAN (DILAZEP DIHYDROCHLORIDE) [Suspect]
     Dosage: PO
     Route: 048
     Dates: start: 20040312

REACTIONS (5)
  - HAEMODIALYSIS [None]
  - INTENTIONAL OVERDOSE [None]
  - SOMNOLENCE [None]
  - SUICIDAL IDEATION [None]
  - SUICIDE ATTEMPT [None]
